FAERS Safety Report 5007013-X (Version None)
Quarter: 2006Q2

REPORT INFORMATION
  Report Type: 
  Country: None (occurrence: None)
  Receive Date: 20060517
  Receipt Date: 20060505
  Transmission Date: 20061013
  Serious: No
  Sender: FDA-Public Use
  Company Number: GB-2005-026304

PATIENT
  Sex: 0

DRUGS (1)
  1. CAMPATH [Suspect]

REACTIONS (2)
  - AUTOIMMUNE DISORDER [None]
  - THYROID DISORDER [None]
